FAERS Safety Report 4356560-2 (Version None)
Quarter: 2004Q2

REPORT INFORMATION
  Report Type: 
  Country: None (occurrence: None)
  Receive Date: 20040511
  Receipt Date: 20040427
  Transmission Date: 20050107
  Serious: Yes (Hospitalization, Other)
  Sender: FDA-Public Use
  Company Number: 2004S1001004

PATIENT
  Age: 60 Year
  Sex: Female
  Weight: 70.7611 kg

DRUGS (3)
  1. CAELYX (LIPOSOMAL DOXORUGICIN) INJECTABLE SOLUTION [Suspect]
     Indication: PERITONEAL CARCINOMA
     Dosage: 30 MG/M^2 INTRAVENOUS
     Route: 042
     Dates: start: 20040223, end: 20040223
  2. PACLITAXEL [Suspect]
     Indication: PERITONEAL CARCINOMA
     Dosage: 175 MG/M^2 INTRAVENOUS
     Route: 042
     Dates: start: 20040223, end: 20040223
  3. CARBOPLATIN [Suspect]
     Indication: PERITONEAL CARCINOMA
     Dosage: 70 MG INTRAVENOUS
     Route: 042
     Dates: start: 20040227, end: 20040227

REACTIONS (7)
  - BLOOD PRESSURE DIASTOLIC DECREASED [None]
  - DEHYDRATION [None]
  - DIARRHOEA [None]
  - GASTROINTESTINAL DISORDER [None]
  - PLEURAL EFFUSION [None]
  - PYREXIA [None]
  - URINARY TRACT INFECTION [None]
